FAERS Safety Report 18505331 (Version 1)
Quarter: 2020Q4

REPORT INFORMATION
  Report Type: Report from Study
  Country: None (occurrence: US)
  Receive Date: 20201116
  Receipt Date: 20201116
  Transmission Date: 20210114
  Serious: Yes (Hospitalization, Other)
  Sender: FDA-Public Use
  Company Number: US-INSMED, INC.-US-INS-20-01679

PATIENT
  Age: 55 Year
  Sex: Male

DRUGS (1)
  1. ARIKAYCE [Suspect]
     Active Substance: AMIKACIN
     Indication: MYCOBACTERIUM AVIUM COMPLEX INFECTION
     Route: 055
     Dates: start: 20200831, end: 2020

REACTIONS (7)
  - Pneumonia bacterial [Recovered/Resolved]
  - Cough [Unknown]
  - Dyspnoea [Unknown]
  - Lung neoplasm malignant [Unknown]
  - Pulmonary mass [Unknown]
  - Hospitalisation [Unknown]
  - Chest discomfort [Unknown]

NARRATIVE: CASE EVENT DATE: 2020
